FAERS Safety Report 24121553 (Version 3)
Quarter: 2024Q4

REPORT INFORMATION
  Report Type: Report from Study
  Country: KR (occurrence: KR)
  Receive Date: 20240722
  Receipt Date: 20241011
  Transmission Date: 20250115
  Serious: Yes (Other)
  Sender: NOVARTIS
  Company Number: KR-002147023-NVSC2024KR149132

PATIENT
  Age: 53 Year
  Sex: Female

DRUGS (2)
  1. ARCAPTA NEOHALER [Suspect]
     Active Substance: INDACATEROL MALEATE
     Indication: Asthma
     Dosage: 156/160UG, QD
     Route: 055
     Dates: start: 20230324
  2. VENTOLIN [Concomitant]
     Active Substance: ALBUTEROL SULFATE
     Indication: Asthma
     Dosage: 1 PUFF
     Route: 055
     Dates: start: 20230324, end: 20230420

REACTIONS (4)
  - Vaginal haemorrhage [Recovered/Resolved]
  - Uterine leiomyoma [Unknown]
  - Cervical polyp [Unknown]
  - Disease recurrence [Unknown]

NARRATIVE: CASE EVENT DATE: 20230503
